FAERS Safety Report 5690924-X (Version None)
Quarter: 2008Q2

REPORT INFORMATION
  Report Type: 
  Country: None (occurrence: None)
  Receive Date: 20080401
  Receipt Date: 20080326
  Transmission Date: 20081010
  Serious: Yes (Other)
  Sender: FDA-Public Use
  Company Number: US-ALLERGAN-0802635US

PATIENT
  Sex: Female
  Weight: 68.027 kg

DRUGS (2)
  1. BOTOX [Suspect]
     Indication: MUSCLE SPASTICITY
     Dosage: 650 UNITS, SINGLE
     Route: 030
     Dates: start: 20071206, end: 20071206
  2. FLUOXETINE [Concomitant]
     Indication: ANTIDEPRESSANT THERAPY
     Dosage: UNK, UNK

REACTIONS (3)
  - DYSPHAGIA [None]
  - DYSPNOEA [None]
  - MASTICATION DISORDER [None]
